FAERS Safety Report 10202225 (Version 1)
Quarter: 2014Q2

REPORT INFORMATION
  Report Type: Spontaneous
  Country: GB (occurrence: GB)
  Receive Date: 20140528
  Receipt Date: 20140528
  Transmission Date: 20141212
  Serious: Yes (Other)
  Sender: FDA-Public Use
  Company Number: GB-B.I. PHARMACEUTICALS,INC./RIDGEFIELD-2014-BI-22749UK

PATIENT
  Age: 44 Year
  Sex: Female
  Weight: 105 kg

DRUGS (8)
  1. TRAJENTA [Suspect]
     Indication: PRODUCT USED FOR UNKNOWN INDICATION
     Route: 065
     Dates: start: 20140410, end: 20140508
  2. DIHYDROCODEINE [Concomitant]
     Route: 065
     Dates: start: 20140205, end: 20140508
  3. ERYTHROMYCIN [Concomitant]
     Route: 065
     Dates: start: 20140207, end: 20140214
  4. FLUTICASONE [Concomitant]
     Route: 065
     Dates: start: 20140307, end: 20140416
  5. PREDNISOLONE [Concomitant]
     Route: 065
     Dates: start: 20140207, end: 20140212
  6. REPAGLINIDE [Concomitant]
     Route: 065
     Dates: start: 20140508
  7. SALBUTAMOL [Concomitant]
     Route: 065
     Dates: start: 20140113
  8. VOLUMATIC [Concomitant]
     Route: 065
     Dates: start: 20140317, end: 20140414

REACTIONS (1)
  - Renal pain [Not Recovered/Not Resolved]
